FAERS Safety Report 8365911-3 (Version None)
Quarter: 2012Q2

REPORT INFORMATION
  Report Type: 
  Country: None (occurrence: None)
  Receive Date: 20120515
  Receipt Date: 20120515
  Transmission Date: 20120825
  Serious: Yes (Death)
  Sender: FDA-Public Use
  Company Number: None

PATIENT
  Age: 91 Year
  Sex: Female

DRUGS (8)
  1. METOPROLOL TARTRATE [Concomitant]
  2. CLOPIDOGREL [Concomitant]
  3. LISINOPRIL [Concomitant]
  4. ASPIRIN [Concomitant]
  5. REVLIMID [Suspect]
     Indication: 5Q MINUS SYNDROME
     Dosage: 5 MG QOD PO
     Route: 048
     Dates: start: 20120221, end: 20120514
  6. CYANOCOBALAMIN [Concomitant]
  7. SIMVASTATIN [Concomitant]
  8. IBUPROFEN [Concomitant]

REACTIONS (1)
  - FULL BLOOD COUNT DECREASED [None]
